FAERS Safety Report 8216517-8 (Version None)
Quarter: 2012Q1

REPORT INFORMATION
  Report Type: 
  Country: None (occurrence: None)
  Receive Date: 20120316
  Receipt Date: 20120312
  Transmission Date: 20120608
  Serious: Yes (Other)
  Sender: FDA-Public Use
  Company Number: US-ABBOTT-12P-163-0903477-00

PATIENT
  Sex: Male
  Weight: 78.542 kg

DRUGS (3)
  1. HUMIRA [Suspect]
     Indication: RHEUMATOID ARTHRITIS
     Dosage: STOPPED FOR SURGERY
     Dates: start: 20090914, end: 20111201
  2. HUMIRA [Suspect]
  3. PLAQUENIL [Concomitant]
     Indication: PRODUCT USED FOR UNKNOWN INDICATION

REACTIONS (8)
  - NERVE COMPRESSION [None]
  - PRODUCTIVE COUGH [None]
  - CERVICOBRACHIAL SYNDROME [None]
  - PAIN [None]
  - INTERVERTEBRAL DISC DEGENERATION [None]
  - EXOSTOSIS [None]
  - NECK PAIN [None]
  - MUSCULOSKELETAL STIFFNESS [None]
